FAERS Safety Report 7677087-6 (Version None)
Quarter: 2011Q3

REPORT INFORMATION
  Report Type: 
  Country: None (occurrence: None)
  Receive Date: 20110811
  Receipt Date: 20110801
  Transmission Date: 20111222
  Serious: Yes (Hospitalization)
  Sender: FDA-Public Use
  Company Number: US-JNJFOC-20100601981

PATIENT
  Sex: Female
  Weight: 42.3 kg

DRUGS (4)
  1. PREDNISONE [Concomitant]
  2. DRUGS FOR ACID RELATED DISORDERS [Concomitant]
  3. REMICADE [Suspect]
     Route: 042
     Dates: start: 20090623
  4. REMICADE [Suspect]
     Indication: CROHN'S DISEASE
     Dosage: TOTAL 7 DOSES
     Route: 042
     Dates: start: 20100320

REACTIONS (1)
  - OBSTRUCTION [None]
